FAERS Safety Report 8180420-2 (Version None)
Quarter: 2012Q1

REPORT INFORMATION
  Report Type: 
  Country: None (occurrence: None)
  Receive Date: 20120302
  Receipt Date: 20120224
  Transmission Date: 20120608
  Serious: Yes (Hospitalization)
  Sender: FDA-Public Use
  Company Number: GB-PFIZER INC-2012050610

PATIENT
  Age: 65 Year
  Sex: Male
  Weight: 85.2 kg

DRUGS (9)
  1. CRIZOTINIB [Suspect]
     Indication: LUNG ADENOCARCINOMA
     Dosage: 250 MG, 2X/DAY
     Route: 048
     Dates: start: 20120203
  2. MORPHINE SULFATE [Concomitant]
     Dosage: 5 MG, AS NEEDED
     Route: 048
     Dates: start: 20120206
  3. FLUTICASONE PROPIONATE/SALMETEROL [Concomitant]
     Dosage: 250 UG, 2X/DAY
     Route: 055
     Dates: start: 20110517
  4. TINZAPARIN SODIUM [Concomitant]
     Dosage: 18000 IU, 1X/DAY
     Route: 058
     Dates: start: 20120130
  5. ACETAMINOPHEN AND CODEINE PHOSPHATE [Concomitant]
     Dosage: X2 4 TIMES DAILY
     Route: 048
     Dates: start: 20120130
  6. SIMPLE LINCTUS [Concomitant]
     Dosage: 5 ML, 3X/DAY
     Route: 048
     Dates: start: 20120206
  7. SALBUTAMOL [Concomitant]
     Dosage: 100 UG, 2X/DAY
     Route: 055
     Dates: start: 20111114
  8. METOCLOPRAMIDE [Concomitant]
     Dosage: 10 MG, 3X/DAY
     Route: 048
     Dates: start: 20120207
  9. FENTANYL [Concomitant]
     Dosage: 25 UG/HR
     Route: 062
     Dates: start: 20120206

REACTIONS (1)
  - ATRIAL FIBRILLATION [None]
